FAERS Safety Report 9260117 (Version 1)
Quarter: 2013Q2

REPORT INFORMATION
  Report Type: Spontaneous
  Country: US (occurrence: US)
  Receive Date: 20130429
  Receipt Date: 20130429
  Transmission Date: 20140414
  Serious: Yes (Other)
  Sender: FDA-Public Use
  Company Number: US-BAYER-2013-051821

PATIENT
  Age: 40 Year
  Sex: Female
  Weight: 71.66 kg

DRUGS (1)
  1. GIANVI [Suspect]

REACTIONS (1)
  - Deep vein thrombosis [Recovering/Resolving]
